FAERS Safety Report 10913048 (Version 1)
Quarter: 2015Q1

REPORT INFORMATION
  Report Type: Spontaneous
  Country: US (occurrence: None)
  Receive Date: 20150310
  Receipt Date: 20150310
  Transmission Date: 20150721
  Serious: Yes (Death)
  Sender: FDA-Public Use
  Company Number: BD-2015-0222

PATIENT

DRUGS (2)
  1. MIDAZOLAM [Suspect]
     Active Substance: MIDAZOLAM\MIDAZOLAM HYDROCHLORIDE
     Indication: SEDATION
     Dosage: 3.7 MG/HR FOR 3 DAYS, INTRAVENOUS
     Route: 042
  2. FENTANYL (FENTANYL) [Concomitant]
     Active Substance: FENTANYL

REACTIONS (1)
  - Death [None]
